FAERS Safety Report 16884226 (Version 2)
Quarter: 2019Q4

REPORT INFORMATION
  Report Type: Spontaneous
  Country: TR (occurrence: TR)
  Receive Date: 20191004
  Receipt Date: 20191014
  Transmission Date: 20200122
  Serious: Yes (Other)
  Sender: FDA-Public Use
  Company Number: TR-ACCORD-156295

PATIENT
  Age: 36 Year
  Sex: Female

DRUGS (3)
  1. ETOPOSIDE. [Concomitant]
     Active Substance: ETOPOSIDE
     Indication: CHORIOCARCINOMA
     Dosage: DAYS 1-5, EVERY THREE WEEKS
  2. CISPLATIN. [Suspect]
     Active Substance: CISPLATIN
     Indication: CHORIOCARCINOMA
     Dosage: ON DAYS 1-5, EVERY THREE WEEKS
  3. BLEOMYCIN [Concomitant]
     Active Substance: BLEOMYCIN SULFATE
     Indication: CHORIOCARCINOMA
     Dosage: ON DAYS 1, 8 AND 15, EVERY THREE WEEKS

REACTIONS (3)
  - Hypomagnesaemia [Unknown]
  - Hypokalaemia [Unknown]
  - Renal tubular disorder [Unknown]
